FAERS Safety Report 5498295-9 (Version None)
Quarter: 2007Q4

REPORT INFORMATION
  Report Type: 
  Country: None (occurrence: None)
  Receive Date: 20071025
  Receipt Date: 20070426
  Transmission Date: 20080405
  Serious: No
  Sender: FDA-Public Use
  Company Number: A0648897A

PATIENT
  Sex: Female

DRUGS (3)
  1. ADVAIR DISKUS 100/50 [Suspect]
     Indication: ASTHMA
     Dosage: 1PUFF PER DAY
     Route: 055
     Dates: start: 20070423
  2. XANAX [Concomitant]
  3. UNKNOWN SUPPLEMENT [Concomitant]

REACTIONS (2)
  - MOUTH ULCERATION [None]
  - PHARYNGOLARYNGEAL PAIN [None]
